FAERS Safety Report 10594151 (Version 3)
Quarter: 2020Q3

REPORT INFORMATION
  Report Type: Spontaneous
  Country: TW (occurrence: TW)
  Receive Date: 20141119
  Receipt Date: 20200724
  Transmission Date: 20201102
  Serious: Yes (Death, Other)
  Sender: FDA-Public Use
  Company Number: TW-PFIZER INC-2014307971

PATIENT
  Age: 74 Year
  Sex: Male

DRUGS (1)
  1. IRINOTECAN HCL [Suspect]
     Active Substance: IRINOTECAN HYDROCHLORIDE
     Indication: COLORECTAL CANCER METASTATIC
     Dosage: 80 MG/M2, SINGLE, OVER 90 MINUTES
     Route: 042
     Dates: start: 200503

REACTIONS (2)
  - Septic shock [Fatal]
  - Febrile neutropenia [Unknown]
